FAERS Safety Report 16029374 (Version 1)
Quarter: 2019Q1

REPORT INFORMATION
  Report Type: Spontaneous
  Country: US (occurrence: US)
  Receive Date: 20190304
  Receipt Date: 20190304
  Transmission Date: 20190418
  Serious: No
  Sender: FDA-Public Use
  Company Number: US-IMPAX LABORATORIES, LLC-2018-IPXL-01415

PATIENT
  Age: 62 Year
  Sex: Male

DRUGS (2)
  1. RYTARY [Suspect]
     Active Substance: CARBIDOPA\LEVODOPA
     Indication: PARKINSON^S DISEASE
     Dosage: UNK
     Route: 048
     Dates: start: 2017
  2. RYTARY [Suspect]
     Active Substance: CARBIDOPA\LEVODOPA
     Dosage: 23.75/95 MG, 2 CAPSULES AT 6 AM, 1 CAPSULE AT NOON, 1 CAPSULE AT 6 PM, 1 CAPSULE BETWEEN 10-11 PM
     Route: 048

REACTIONS (3)
  - Freezing phenomenon [Recovered/Resolved]
  - Labelled drug-food interaction medication error [Unknown]
  - Gait inability [Recovered/Resolved]
